FAERS Safety Report 10896494 (Version 1)
Quarter: 2015Q1

REPORT INFORMATION
  Report Type: Spontaneous
  Country: BE (occurrence: None)
  Receive Date: 20150302
  Receipt Date: 20150302
  Transmission Date: 20150721
  Serious: Yes (Other)
  Sender: FDA-Public Use
  Company Number: BE-20150007

PATIENT
  Age: 43 Year
  Sex: Male

DRUGS (1)
  1. HEXABRIX [Suspect]
     Active Substance: IOXAGLATE MEGLUMINE\IOXAGLATE SODIUM
     Indication: ARTHROPATHY
     Route: 014
     Dates: start: 20150108, end: 20150108

REACTIONS (11)
  - Dysphagia [None]
  - Loss of consciousness [None]
  - Hyperhidrosis [None]
  - Malaise [None]
  - Amnesia [None]
  - Anaphylactic shock [None]
  - Seizure anoxic [None]
  - Laryngeal oedema [None]
  - Extravasation [None]
  - Cerebral hypoperfusion [None]
  - Vomiting [None]

NARRATIVE: CASE EVENT DATE: 20150108
